FAERS Safety Report 16235760 (Version 1)
Quarter: 2019Q2

REPORT INFORMATION
  Report Type: Spontaneous
  Country: FR (occurrence: FR)
  Receive Date: 20190424
  Receipt Date: 20190424
  Transmission Date: 20190711
  Serious: Yes (Hospitalization, Other)
  Sender: FDA-Public Use
  Company Number: PHHY2019FR094118

PATIENT
  Age: 37 Year
  Sex: Female

DRUGS (9)
  1. BETAMETHASONE. [Suspect]
     Active Substance: BETAMETHASONE
     Indication: PRODUCT USED FOR UNKNOWN INDICATION
     Route: 042
  2. LABETALOL [Suspect]
     Active Substance: LABETALOL\LABETALOL HYDROCHLORIDE
     Indication: HYPERTENSION
     Dosage: 16 MG/H, UNK
     Route: 042
  3. ISOTONIC SODIUM CHLORIDE SOLUTION [Suspect]
     Active Substance: SODIUM CHLORIDE
     Indication: PROPHYLAXIS
     Dosage: 250 ML, UNK
     Route: 041
  4. DEXTROSE. [Suspect]
     Active Substance: DEXTROSE
     Indication: PRODUCT USED FOR UNKNOWN INDICATION
     Route: 065
  5. LABETALOL [Suspect]
     Active Substance: LABETALOL\LABETALOL HYDROCHLORIDE
     Dosage: 36 MG/H, UNK
     Route: 042
  6. MAGNESIUM SULFATE. [Suspect]
     Active Substance: MAGNESIUM SULFATE
     Indication: PRODUCT USED FOR UNKNOWN INDICATION
     Route: 065
  7. HEPARIN [Suspect]
     Active Substance: HEPARIN SODIUM
     Indication: PRODUCT USED FOR UNKNOWN INDICATION
     Route: 065
  8. LABETALOL [Suspect]
     Active Substance: LABETALOL\LABETALOL HYDROCHLORIDE
     Dosage: 10 MG/H, UNK
     Route: 042
  9. NICARDIPINE [Suspect]
     Active Substance: NICARDIPINE
     Indication: HYPERTENSION
     Route: 048

REACTIONS (12)
  - Oedema peripheral [Unknown]
  - Generalised oedema [Not Recovered/Not Resolved]
  - Photophobia [Unknown]
  - Hyperreflexia [Unknown]
  - Headache [Recovering/Resolving]
  - Vitreous floaters [Unknown]
  - Premature delivery [Unknown]
  - Pre-eclampsia [Unknown]
  - Vision blurred [Recovering/Resolving]
  - Tinnitus [Unknown]
  - Maternal exposure during pregnancy [Unknown]
  - Blood pressure increased [Not Recovered/Not Resolved]
